FAERS Safety Report 8552156-7 (Version None)
Quarter: 2012Q3

REPORT INFORMATION
  Report Type: 
  Country: None (occurrence: None)
  Receive Date: 20120731
  Receipt Date: 20120718
  Transmission Date: 20120928
  Serious: No
  Sender: FDA-Public Use
  Company Number: US-BIOGENIDEC-2011BI034104

PATIENT
  Age: 34 Year
  Sex: Female

DRUGS (2)
  1. AVONEX [Suspect]
     Indication: MULTIPLE SCLEROSIS
     Route: 030
     Dates: start: 20110819
  2. NAPROXEN (ALEVE) [Concomitant]
     Indication: PREMEDICATION

REACTIONS (6)
  - VOMITING [None]
  - WHITE BLOOD CELL COUNT INCREASED [None]
  - INFLUENZA LIKE ILLNESS [None]
  - DIARRHOEA [None]
  - MOBILITY DECREASED [None]
  - PAIN [None]
